FAERS Safety Report 4925064-8 (Version None)
Quarter: 2006Q1

REPORT INFORMATION
  Report Type: 
  Country: None (occurrence: None)
  Receive Date: 20060222
  Receipt Date: 20060207
  Transmission Date: 20060701
  Serious: Yes (Hospitalization)
  Sender: FDA-Public Use
  Company Number: US-2006-002335

PATIENT
  Age: 84 Year
  Sex: Male

DRUGS (1)
  1. BETASERON [Suspect]
     Indication: MULTIPLE SCLEROSIS
     Dosage: 8 MIU, EVERY 2D, SUBCUTANEOUS
     Route: 058
     Dates: start: 20050817

REACTIONS (7)
  - ASTHENIA [None]
  - DYSARTHRIA [None]
  - FALL [None]
  - GRIP STRENGTH DECREASED [None]
  - HYPOTENSION [None]
  - MASS [None]
  - PAIN [None]
